FAERS Safety Report 15739799 (Version 1)
Quarter: 2018Q4

REPORT INFORMATION
  Report Type: Spontaneous
  Country: CA (occurrence: CA)
  Receive Date: 20181218
  Receipt Date: 20181218
  Transmission Date: 20190205
  Serious: Yes (Other)
  Sender: FDA-Public Use
  Company Number: None

PATIENT
  Age: 6 Month
  Sex: Male
  Weight: 5.62 kg

DRUGS (1)
  1. EXACT CLEARLAX [Suspect]
     Active Substance: POLYETHYLENE GLYCOL 3350
     Indication: CONSTIPATION
     Dosage: ?          QUANTITY:6.5 TEASPOON(S);?
     Route: 048
     Dates: start: 20181204, end: 20181212

REACTIONS (4)
  - Somnolence [None]
  - Abnormal behaviour [None]
  - Depressed mood [None]
  - Dyspnoea [None]

NARRATIVE: CASE EVENT DATE: 20181212
